FAERS Safety Report 7249036-6 (Version None)
Quarter: 2011Q1

REPORT INFORMATION
  Report Type: 
  Country: None (occurrence: None)
  Receive Date: 20110128
  Receipt Date: 20110106
  Transmission Date: 20110831
  Serious: Yes (Other)
  Sender: FDA-Public Use
  Company Number: JP-BRISTOL-MYERS SQUIBB COMPANY-15484371

PATIENT

DRUGS (1)
  1. ABILIFY [Suspect]
     Route: 048
     Dates: start: 20060608, end: 20080630

REACTIONS (1)
  - PSYCHIATRIC SYMPTOM [None]
